FAERS Safety Report 6921397-4 (Version None)
Quarter: 2010Q3

REPORT INFORMATION
  Report Type: 
  Country: None (occurrence: None)
  Receive Date: 20100812
  Receipt Date: 20100730
  Transmission Date: 20110219
  Serious: Yes (Hospitalization, Other)
  Sender: FDA-Public Use
  Company Number: PHHY2010JP44371

PATIENT
  Age: 59 Year
  Sex: Male

DRUGS (11)
  1. RASILEZ [Suspect]
     Indication: HYPERTENSION
     Dosage: 150 MG DAILY
     Route: 048
  2. AMLODIPINE BESYLATE [Concomitant]
     Dosage: 10 MG
  3. AVAPRO [Concomitant]
     Dosage: 200 MG
  4. DOXAZOSIN MESYLATE [Concomitant]
  5. PLETAL [Concomitant]
     Dosage: UNK
  6. TENORMIN [Concomitant]
     Dosage: UNK
  7. EXCEGRAN [Concomitant]
     Dosage: UNK
  8. DEPAS [Concomitant]
     Dosage: UNK
  9. LOXOPROFEN SODIUM [Concomitant]
     Dosage: UNK
  10. TAKEPRON [Concomitant]
     Dosage: UNK
  11. URSODIOL [Concomitant]
     Dosage: UNK

REACTIONS (6)
  - AORTIC DISSECTION RUPTURE [None]
  - BLOOD PRESSURE INCREASED [None]
  - CEREBRAL INFARCTION [None]
  - GAMMA-GLUTAMYLTRANSFERASE INCREASED [None]
  - HEPATIC FUNCTION ABNORMAL [None]
  - SURGERY [None]
